FAERS Safety Report 7152301-4 (Version None)
Quarter: 2010Q4

REPORT INFORMATION
  Report Type: 
  Country: None (occurrence: None)
  Receive Date: 20101213
  Receipt Date: 20101130
  Transmission Date: 20110411
  Serious: Yes (Other)
  Sender: FDA-Public Use
  Company Number: CO-PAR PHARMACEUTICAL, INC-2010SCPR002312

PATIENT

DRUGS (1)
  1. IBUPROFEN [Suspect]
     Indication: PRODUCT USED FOR UNKNOWN INDICATION
     Dosage: 6 G, UNKNOWN
     Route: 065

REACTIONS (3)
  - OVERDOSE [None]
  - POISONING [None]
  - RENAL FAILURE ACUTE [None]
